FAERS Safety Report 4696029-9 (Version None)
Quarter: 2005Q2

REPORT INFORMATION
  Report Type: 
  Country: None (occurrence: None)
  Receive Date: 20050621
  Receipt Date: 20050615
  Transmission Date: 20051028
  Serious: Yes (Other)
  Sender: FDA-Public Use
  Company Number: GB-GLAXOSMITHKLINE-B0384500A

PATIENT
  Sex: Male

DRUGS (1)
  1. ZEFFIX [Suspect]

REACTIONS (1)
  - NEPHRITIS INTERSTITIAL [None]
